FAERS Safety Report 7126224-0 (Version None)
Quarter: 2010Q4

REPORT INFORMATION
  Report Type: 
  Country: None (occurrence: None)
  Receive Date: 20101129
  Receipt Date: 20101117
  Transmission Date: 20110411
  Serious: Yes (Hospitalization, Other)
  Sender: FDA-Public Use
  Company Number: PHHY2010US76184

PATIENT
  Sex: Female

DRUGS (5)
  1. EXJADE [Suspect]
     Indication: IRON OVERLOAD
     Dosage: 375 MG, QD
     Route: 048
     Dates: end: 20101109
  2. EXJADE [Suspect]
     Dosage: 375 MG, QD
     Route: 048
     Dates: start: 20101110
  3. PENICILLIN [Concomitant]
     Dosage: UNK
  4. M.V.I. [Concomitant]
     Dosage: UNK
  5. TUMS [Concomitant]
     Dosage: UNK

REACTIONS (5)
  - ABDOMINAL OPERATION [None]
  - ABDOMINAL PAIN [None]
  - APPENDICECTOMY [None]
  - SPLENECTOMY [None]
  - TREATMENT NONCOMPLIANCE [None]
